FAERS Safety Report 20780719 (Version 2)
Quarter: 2022Q4

REPORT INFORMATION
  Report Type: Spontaneous
  Country: US (occurrence: US)
  Receive Date: 20220504
  Receipt Date: 20221122
  Transmission Date: 20230113
  Serious: Yes (Other)
  Sender: FDA-Public Use
  Company Number: US-BRISTOL-MYERS SQUIBB COMPANY-2022-025963

PATIENT
  Age: 43 Year
  Sex: Female

DRUGS (2)
  1. SPRYCEL [Suspect]
     Active Substance: DASATINIB
     Indication: Chronic myeloid leukaemia
     Dosage: DAILY
     Route: 048
     Dates: start: 20210511
  2. SPRYCEL [Suspect]
     Active Substance: DASATINIB
     Dosage: DAILY
     Route: 048
     Dates: start: 201705

REACTIONS (2)
  - Pneumonia [Recovering/Resolving]
  - Product dose omission issue [Unknown]
